FAERS Safety Report 7091808-5 (Version None)
Quarter: 2010Q4

REPORT INFORMATION
  Report Type: 
  Country: None (occurrence: None)
  Receive Date: 20101101
  Receipt Date: 20101018
  Transmission Date: 20110411
  Serious: Yes (Congenital Anomaly)
  Sender: FDA-Public Use
  Company Number: 2010SP055526

PATIENT
  Age: 36 Year
  Sex: Female

DRUGS (2)
  1. IMPLANON [Suspect]
     Indication: CONTRACEPTION
     Dosage: 68 MG;
     Dates: start: 20100318
  2. CLONAZEPAM [Concomitant]

REACTIONS (5)
  - BENIGN HYDATIDIFORM MOLE [None]
  - DRUG EXPOSURE DURING PREGNANCY [None]
  - INTRAPARTUM HAEMORRHAGE [None]
  - MEDICAL DEVICE COMPLICATION [None]
  - PREGNANCY WITH IMPLANT CONTRACEPTIVE [None]
